FAERS Safety Report 10274056 (Version 2)
Quarter: 2015Q1

REPORT INFORMATION
  Report Type: Spontaneous
  Country: CA (occurrence: CA)
  Receive Date: 20140702
  Receipt Date: 20150108
  Transmission Date: 20150720
  Serious: Yes (Death)
  Sender: FDA-Public Use
  Company Number: CA-MALLINCKRODT-T201402593

PATIENT
  Age: 58 Year
  Sex: Male
  Weight: 117 kg

DRUGS (5)
  1. TRAZODONE [Concomitant]
     Active Substance: TRAZODONE HYDROCHLORIDE
  2. NORDIAZEPAM [Concomitant]
     Active Substance: NORDAZEPAM
  3. DIAZEPAM. [Concomitant]
     Active Substance: DIAZEPAM
  4. METHADOSE [Suspect]
     Active Substance: METHADONE HYDROCHLORIDE
     Indication: PRODUCT USED FOR UNKNOWN INDICATION
     Route: 065
  5. TYLENOL WITH CODEINE [Suspect]
     Active Substance: ACETAMINOPHEN\CODEINE PHOSPHATE
     Indication: PRODUCT USED FOR UNKNOWN INDICATION
     Dosage: 30 MG, UNK
     Route: 065

REACTIONS (2)
  - Overdose [Fatal]
  - Toxicologic test abnormal [Fatal]

NARRATIVE: CASE EVENT DATE: 2013
